APPROVED DRUG PRODUCT: VILAZODONE HYDROCHLORIDE
Active Ingredient: VILAZODONE HYDROCHLORIDE
Strength: 40MG
Dosage Form/Route: TABLET;ORAL
Application: A208200 | Product #002 | TE Code: AB
Applicant: INVAGEN PHARMACEUTICALS INC
Approved: Apr 7, 2021 | RLD: No | RS: No | Type: RX